FAERS Safety Report 5810907-6 (Version None)
Quarter: 2008Q3

REPORT INFORMATION
  Report Type: 
  Country: None (occurrence: None)
  Receive Date: 20080716
  Receipt Date: 20080704
  Transmission Date: 20090109
  Serious: Yes (Other)
  Sender: FDA-Public Use
  Company Number: PHNU2008DE02019

PATIENT
  Sex: Male

DRUGS (2)
  1. CLOZAPINE [Suspect]
     Indication: SCHIZOPHRENIA
     Dosage: 100 MG/DAY
     Route: 048
     Dates: start: 20060520
  2. CLOZAPINE [Suspect]
     Dosage: 125 MG/DAY

REACTIONS (7)
  - ABDOMINAL PAIN [None]
  - BODY TEMPERATURE INCREASED [None]
  - GASTROINTESTINAL INFECTION [None]
  - MONOCYTE COUNT INCREASED [None]
  - MUSCLE TIGHTNESS [None]
  - NAUSEA [None]
  - VIRAL INFECTION [None]
